FAERS Safety Report 15578195 (Version 1)
Quarter: 2018Q4

REPORT INFORMATION
  Report Type: Spontaneous
  Country: US (occurrence: US)
  Receive Date: 20181029
  Receipt Date: 20181029
  Transmission Date: 20190205
  Serious: Yes (Life-Threatening, Disabling, Other)
  Sender: FDA-Public Use
  Company Number: None

PATIENT
  Age: 61 Year
  Sex: Female
  Weight: 114.31 kg

DRUGS (14)
  1. VENTOLIN [Concomitant]
     Active Substance: ALBUTEROL SULFATE
  2. ATENOLOL 50MG TABLET [Suspect]
     Active Substance: ATENOLOL
     Indication: WOLFF-PARKINSON-WHITE SYNDROME
     Dosage: ?          QUANTITY:1 DF DOSAGE FORM;OTHER FREQUENCY:DAILY IN THE AM;?
     Route: 048
     Dates: start: 20180711, end: 20181008
  3. TENORMIN [Concomitant]
     Active Substance: ATENOLOL
  4. SINGULAIR [Concomitant]
     Active Substance: MONTELUKAST SODIUM
  5. ALBUTEROL. [Concomitant]
     Active Substance: ALBUTEROL
  6. PROTONIX [Concomitant]
     Active Substance: PANTOPRAZOLE SODIUM
  7. ZOFRAN [Concomitant]
     Active Substance: ONDANSETRON HYDROCHLORIDE
  8. FLONASE [Concomitant]
     Active Substance: FLUTICASONE PROPIONATE
  9. CETTIN [Concomitant]
  10. LASIX [Concomitant]
     Active Substance: FUROSEMIDE
  11. ZYRTEC [Concomitant]
     Active Substance: CETIRIZINE HYDROCHLORIDE
  12. ZINC. [Concomitant]
     Active Substance: ZINC
  13. PREDNISONE. [Concomitant]
     Active Substance: PREDNISONE
  14. ULTRAM [Concomitant]
     Active Substance: TRAMADOL HYDROCHLORIDE

REACTIONS (4)
  - Headache [None]
  - Drug ineffective [None]
  - Product substitution issue [None]
  - Facial paralysis [None]

NARRATIVE: CASE EVENT DATE: 20180927
